FAERS Safety Report 22632734 (Version 1)
Quarter: 2023Q2

REPORT INFORMATION
  Report Type: Spontaneous
  Country: GB (occurrence: GB)
  Receive Date: 20230623
  Receipt Date: 20230623
  Transmission Date: 20230721
  Serious: Yes (Other)
  Sender: FDA-Public Use
  Company Number: GB-AUROBINDO-AUR-APL-2023-041560

PATIENT
  Age: 46 Year
  Sex: Male

DRUGS (2)
  1. OLANZAPINE [Suspect]
     Active Substance: OLANZAPINE
     Indication: Schizophrenia
     Route: 048
     Dates: start: 2016
  2. LAMOTRIGINE [Suspect]
     Active Substance: LAMOTRIGINE
     Indication: Mood altered
     Route: 048

REACTIONS (3)
  - Tachyphrenia [Not Recovered/Not Resolved]
  - Malaise [Not Recovered/Not Resolved]
  - Hallucination [Not Recovered/Not Resolved]
